FAERS Safety Report 12331417 (Version 1)
Quarter: 2016Q2

REPORT INFORMATION
  Report Type: Spontaneous
  Country: US (occurrence: US)
  Receive Date: 20160504
  Receipt Date: 20160504
  Transmission Date: 20160815
  Serious: No
  Sender: FDA-Public Use
  Company Number: US-GLAXOSMITHKLINE-US2016061313

PATIENT
  Age: 62 Year
  Sex: Female

DRUGS (1)
  1. ABREVA [Suspect]
     Active Substance: DOCOSANOL
     Indication: ORAL HERPES
     Dosage: UNK
     Dates: start: 20160404, end: 20160413

REACTIONS (4)
  - Oral herpes [Unknown]
  - Condition aggravated [Unknown]
  - Application site pain [Not Recovered/Not Resolved]
  - Application site scab [Not Recovered/Not Resolved]

NARRATIVE: CASE EVENT DATE: 20160404
